FAERS Safety Report 5777074-9 (Version None)
Quarter: 2008Q2

REPORT INFORMATION
  Report Type: 
  Country: None (occurrence: None)
  Receive Date: 20080618
  Receipt Date: 20080612
  Transmission Date: 20081010
  Serious: Yes (Hospitalization)
  Sender: FDA-Public Use
  Company Number: GB-ASTRAZENECA-2008GB01080

PATIENT
  Age: 77 Year
  Sex: Male
  Weight: 105 kg

DRUGS (17)
  1. ZOLADEX [Suspect]
     Dosage: 10.8MG
     Route: 058
     Dates: start: 20061001, end: 20080428
  2. ALENDRONIC ACID [Concomitant]
     Route: 048
  3. ANGITIL SR [Concomitant]
  4. APIDRA [Concomitant]
  5. ACETAMINOPHEN W/ CODEINE [Concomitant]
     Route: 048
  6. DICLOFENAC DIETHYLAMMONIUM SALT [Concomitant]
  7. DIGOXIN [Concomitant]
     Route: 048
  8. LANTUS [Concomitant]
  9. METFORMIN HYDROCHLORIDE [Concomitant]
     Route: 048
  10. ACETAMINOPHEN [Concomitant]
     Route: 048
  11. PREDNISOLONE [Concomitant]
     Route: 048
  12. PREGABALIN [Concomitant]
     Route: 048
  13. ROSUVASTATIN [Concomitant]
     Route: 048
  14. ALBUTEROL [Concomitant]
     Route: 055
  15. SALMETEROL XINAFOATE [Concomitant]
     Route: 055
  16. SERETIDE [Concomitant]
     Route: 055
  17. TIOTROPIUM BROMIDE [Concomitant]
     Route: 055

REACTIONS (1)
  - INTRA-ABDOMINAL HAEMATOMA [None]
